FAERS Safety Report 3729384 (Version 1)
Quarter: 2020Q3

REPORT INFORMATION
  Report Type: Spontaneous
  Country: US (occurrence: None)
  Receive Date: 20011029
  Receipt Date: 20011029
  Transmission Date: 20201105
  Serious: Yes (Other)
  Sender: FDA-Public Use
  Company Number: 018579

PATIENT
  Age: 92 Year
  Sex: Male

DRUGS (3)
  1. SALSALATE. [Suspect]
     Active Substance: SALSALATE
     Dosage: ORAL
     Route: 048
  2. PENTOXIFYLLINE. [Suspect]
     Active Substance: PENTOXIFYLLINE
  3. THEOPHYLLIN [Concomitant]
     Active Substance: THEOPHYLLINE ANHYDROUS

REACTIONS (4)
  - Pain [None]
  - Rash pruritic [None]
  - Nail disorder [None]
  - Lichen planus [None]
